FAERS Safety Report 15852223 (Version 1)
Quarter: 2019Q1

REPORT INFORMATION
  Report Type: Spontaneous
  Country: US (occurrence: US)
  Receive Date: 20190122
  Receipt Date: 20190122
  Transmission Date: 20190417
  Serious: No
  Sender: FDA-Public Use
  Company Number: US-TEVA-2019-US-998500

PATIENT
  Sex: Male

DRUGS (1)
  1. COPAXONE [Suspect]
     Active Substance: GLATIRAMER ACETATE
     Indication: MULTIPLE SCLEROSIS
     Dosage: FORM STRENGTH: UNKNOWN
     Route: 065

REACTIONS (7)
  - Adverse drug reaction [Unknown]
  - Skin discolouration [Unknown]
  - Back pain [Unknown]
  - Abdominal pain upper [Unknown]
  - Skin wound [Unknown]
  - Abdominal discomfort [Unknown]
  - Drug ineffective [Unknown]
